FAERS Safety Report 12350841 (Version 1)
Quarter: 2016Q2

REPORT INFORMATION
  Report Type: Spontaneous
  Country: US (occurrence: US)
  Receive Date: 20160510
  Receipt Date: 20160510
  Transmission Date: 20160815
  Serious: Yes (Hospitalization, Disabling)
  Sender: FDA-Public Use
  Company Number: US-MEDA-2016040118

PATIENT
  Age: 53 Year
  Sex: Female
  Weight: 95 kg

DRUGS (10)
  1. SOMA [Suspect]
     Active Substance: CARISOPRODOL
     Indication: BACK PAIN
     Route: 048
     Dates: start: 201402
  2. LYRICA [Suspect]
     Active Substance: PREGABALIN
     Indication: FIBROMYALGIA
     Route: 048
     Dates: start: 201403, end: 201411
  3. GABAPENTIN. [Concomitant]
     Active Substance: GABAPENTIN
     Indication: NEURALGIA
     Route: 048
     Dates: start: 201401, end: 2014
  4. CELEBREX [Concomitant]
     Active Substance: CELECOXIB
     Indication: BACK PAIN
  5. METFORMIN [Concomitant]
     Active Substance: METFORMIN HYDROCHLORIDE
     Indication: DIABETES MELLITUS
     Route: 048
     Dates: start: 2012
  6. ALBUTEROL. [Concomitant]
     Active Substance: ALBUTEROL
     Indication: ASTHMA
     Dates: start: 2002
  7. PERCOCET [Concomitant]
     Active Substance: ACETAMINOPHEN\OXYCODONE HYDROCHLORIDE
     Indication: PAIN
  8. ACYCLOVIR. [Concomitant]
     Active Substance: ACYCLOVIR
     Indication: PAIN IN EXTREMITY
  9. ACYCLOVIR. [Concomitant]
     Active Substance: ACYCLOVIR
     Indication: HERPES ZOSTER
  10. PREDNISONE. [Concomitant]
     Active Substance: PREDNISONE
     Indication: PAIN

REACTIONS (9)
  - Fibromyalgia [Recovered/Resolved]
  - Constipation [Unknown]
  - Asthma [Recovered/Resolved]
  - Lethargy [Unknown]
  - Body height decreased [Not Recovered/Not Resolved]
  - Somnolence [Unknown]
  - Rheumatoid arthritis [Not Recovered/Not Resolved]
  - Drug effect incomplete [Not Recovered/Not Resolved]
  - Dry mouth [Recovered/Resolved]

NARRATIVE: CASE EVENT DATE: 201402
